FAERS Safety Report 26122020 (Version 2)
Quarter: 2025Q4

REPORT INFORMATION
  Report Type: Spontaneous
  Country: CA (occurrence: CA)
  Receive Date: 20251204
  Receipt Date: 20251209
  Transmission Date: 20260117
  Serious: Yes (Hospitalization, Other)
  Sender: PFIZER
  Company Number: CA-PFIZER INC-202500234554

PATIENT
  Age: 28 Year
  Sex: Female

DRUGS (6)
  1. IXIFI [Suspect]
     Active Substance: INFLIXIMAB-QBTX
     Indication: Uveitis
     Dosage: 250 MG, EVERY 6 WEEKS
     Route: 042
     Dates: start: 20251022
  2. ALCON [Concomitant]
     Dosage: 1 DF
  3. COMBIGAN [Concomitant]
     Active Substance: BRIMONIDINE TARTRATE\TIMOLOL MALEATE
     Dosage: 1 DF
  4. CELLCEPT [Concomitant]
     Active Substance: MYCOPHENOLATE MOFETIL
     Dosage: 1 DF
  5. PROLENSA [Concomitant]
     Active Substance: BROMFENAC SODIUM
     Dosage: 1 DF
  6. PRED FORTE [Concomitant]
     Active Substance: PREDNISOLONE ACETATE
     Dosage: 1 DF

REACTIONS (2)
  - Precancerous condition [Not Recovered/Not Resolved]
  - Biliary obstruction [Not Recovered/Not Resolved]
